FAERS Safety Report 6481812-X (Version None)
Quarter: 2009Q4

REPORT INFORMATION
  Report Type: 
  Country: None (occurrence: None)
  Receive Date: 20091208
  Receipt Date: 20090326
  Transmission Date: 20100525
  Serious: No
  Sender: FDA-Public Use
  Company Number: US-AMGEN-KDL340253

PATIENT
  Sex: Female

DRUGS (1)
  1. ENBREL [Suspect]
     Indication: RHEUMATOID ARTHRITIS
     Route: 058
     Dates: start: 20080802

REACTIONS (9)
  - ASTHENIA [None]
  - FATIGUE [None]
  - HEADACHE [None]
  - INFLUENZA LIKE ILLNESS [None]
  - INJECTION SITE HAEMORRHAGE [None]
  - INJECTION SITE PAIN [None]
  - JOINT SWELLING [None]
  - MUSCLE TIGHTNESS [None]
  - PAIN [None]
